FAERS Safety Report 18582604 (Version 1)
Quarter: 2020Q4

REPORT INFORMATION
  Report Type: Report from Study
  Country: IT (occurrence: IT)
  Receive Date: 20201205
  Receipt Date: 20201205
  Transmission Date: 20210114
  Serious: Yes (Hospitalization)
  Sender: FDA-Public Use
  Company Number: IT-ACCORD-210000

PATIENT
  Age: 48 Year
  Sex: Male

DRUGS (3)
  1. TRITTICO [Suspect]
     Active Substance: TRAZODONE HYDROCHLORIDE
     Dosage: STRENGTH-300 MG, PROLONGED-RELEASE FILM-COATED TABLETS
     Route: 048
  2. QUETIAPINE. [Suspect]
     Active Substance: QUETIAPINE
     Route: 048
  3. DEPAKIN CHRONO [Suspect]
     Active Substance: VALPROIC ACID
     Dosage: STRENGTH-300 MG
     Route: 048

REACTIONS (3)
  - Somnolence [Unknown]
  - Hypoventilation [Unknown]
  - Drug abuse [Unknown]

NARRATIVE: CASE EVENT DATE: 20201030
